FAERS Safety Report 5760867-1 (Version None)
Quarter: 2008Q2

REPORT INFORMATION
  Report Type: 
  Country: None (occurrence: None)
  Receive Date: 20080606
  Receipt Date: 20080530
  Transmission Date: 20081010
  Serious: Yes (Other)
  Sender: FDA-Public Use
  Company Number: US-ASTRAZENECA-2008UW11026

PATIENT
  Age: 13 Year
  Sex: Female
  Weight: 44.5 kg

DRUGS (2)
  1. SEROQUEL [Suspect]
     Indication: BIPOLAR DISORDER
     Route: 048
     Dates: start: 20080111
  2. PAXIL [Concomitant]

REACTIONS (8)
  - ABDOMINAL PAIN UPPER [None]
  - AMNESIA [None]
  - BIPOLAR DISORDER [None]
  - DISTURBANCE IN ATTENTION [None]
  - IRRITABILITY [None]
  - SUICIDAL IDEATION [None]
  - TREMOR [None]
  - TRICHOTILLOMANIA [None]
